FAERS Safety Report 21059663 (Version 1)
Quarter: 2022Q3

REPORT INFORMATION
  Report Type: Spontaneous
  Country: ES (occurrence: ES)
  Receive Date: 20220708
  Receipt Date: 20220708
  Transmission Date: 20221027
  Serious: Yes (Congenital Anomaly)
  Sender: FDA-Public Use
  Company Number: None

PATIENT
  Age: 66 Year
  Sex: Female

DRUGS (10)
  1. ZOLEDRONIC ACID [Suspect]
     Active Substance: ZOLEDRONIC ACID
     Indication: Osteoporosis
     Dosage: 5.0 MG
     Dates: start: 20220602
  2. DILIBAN 75 mg/650 mg TABLETS, 60 tablets (BLISTERS) [Concomitant]
     Indication: Pain
     Dosage: 1.0 TABLET AFTER LUNCH AND DINNER
     Dates: start: 20220602
  3. FOSFOCINA 500 MG HARD CAPSULES, 24 capsules [Concomitant]
     Indication: Dysuria
     Dosage: 500.0 MG EVERY 8 HOURS
     Dates: start: 20220611
  4. OMEPRAZOLE MABO 40 MG GASTRO-RESISTANT CAPSULES, HARD, 56 capsules (Bo [Concomitant]
     Indication: Duodenitis
     Dosage: 40.0 MG BEFORE BREAKFAST AND DINNER
     Dates: start: 20190701
  5. COAPROVEL 300 mg/12.5 mg FILM-COATED TABLETS, 28 tablets [Concomitant]
     Indication: Essential hypertension
     Dosage: 300.0 MG BREAKFAST
     Dates: start: 20081105
  6. NOLOTIL 575 mg HARD CAPSULES, 20 capsules [Concomitant]
     Indication: Pain
     Dosage: 575.0 MG EVERY 8 HOURS
     Dates: start: 20220611
  7. PARACETAMOL CINFA 1 g TABLETS EFG, 40 tablets [Concomitant]
     Indication: Pain
     Dosage: 1.0 G EVERY 8 HOURS
     Dates: start: 20220602
  8. VELMETIA 50 mg/1000 mg FILM-COATED TABLETS, 56 tablets [Concomitant]
     Indication: Type 2 diabetes mellitus
     Dosage: 1.0 TABLET AFTER DINNER
     Dates: start: 20211215
  9. ORVATEZ 10 MG/40 MG FILM-COATED TABLETS, 30 tablets [Concomitant]
     Indication: Hyperlipidaemia
     Dosage: 1.0 TABLET EVERY 24 HOURS
     Dates: start: 20170602
  10. BISOPROLOL CINFA 2.5 MG TABLETS EFG, 28 tablets (PVC/PVDC-ALUMINUM Bli [Concomitant]
     Indication: Tobacco abuse
     Dosage: 2.5 MG BREAKFAST
     Dates: start: 20220507

REACTIONS (1)
  - Renal tubular necrosis [Recovering/Resolving]

NARRATIVE: CASE EVENT DATE: 20220613
